FAERS Safety Report 20186826 (Version 6)
Quarter: 2024Q4

REPORT INFORMATION
  Report Type: Report from Study
  Country: US (occurrence: US)
  Receive Date: 20211215
  Receipt Date: 20241028
  Transmission Date: 20250115
  Serious: Yes (Hospitalization)
  Sender: BAXTER
  Company Number: US-BAXTER-2021BAX039497

PATIENT
  Age: 18 Year
  Sex: Female
  Weight: 57.7 kg

DRUGS (14)
  1. CYCLOPHOSPHAMIDE [Suspect]
     Active Substance: CYCLOPHOSPHAMIDE
     Indication: Chordoma
     Dosage: 393 MG QD, DAYS 1-5 OF 21 DAY CYCLE, SOLUTION FOR INFUSION
     Route: 042
     Dates: start: 20210125, end: 20211206
  2. CYCLOPHOSPHAMIDE [Suspect]
     Active Substance: CYCLOPHOSPHAMIDE
     Dosage: 370 MG QD, DAYS 1-5 OF 21 DAY CYCLE, SOLUTION FOR INFUSION, DOSE REINTRODUCED
     Route: 042
     Dates: start: 20211227
  3. IBRANCE [Suspect]
     Active Substance: PALBOCICLIB
     Indication: Chordoma
     Dosage: 100 MG QD, DAYS 1-14 OF 21 DAY CYCLE
     Route: 048
     Dates: start: 20210125, end: 20211206
  4. IBRANCE [Suspect]
     Active Substance: PALBOCICLIB
     Dosage: 100 MG, QD DAYS 1-14 OF 21 DAY CYCLE, DOSE RE-INTRODUCED
     Route: 048
     Dates: start: 20211227
  5. TOPOTECAN [Suspect]
     Active Substance: TOPOTECAN HYDROCHLORIDE
     Indication: Chordoma
     Dosage: 1.1 MG, QD POWDER FOR CONCENTRATE FOR SOLUTION FOR INFUSION, DAYS 1-5 OF 21 DAY CYCLE
     Route: 041
     Dates: start: 20211206, end: 20211209
  6. TOPOTECAN [Suspect]
     Active Substance: TOPOTECAN HYDROCHLORIDE
     Dosage: 1.1 MG, QD POWDER FOR CONCENTRATE FOR SOLUTION FOR INFUSION, DAYS 1-5 OF 21 DAY CYCLE, DOSE RE-INTRO
     Route: 041
     Dates: start: 20211227
  7. TOPOTECAN [Suspect]
     Active Substance: TOPOTECAN HYDROCHLORIDE
     Dosage: 1.19 MG, ONCE DAILY (DAYS 1-5 OF 21 DAY CYCLE), ONGOING
     Route: 041
     Dates: start: 20210125
  8. GABAPENTIN [Concomitant]
     Active Substance: GABAPENTIN
     Indication: Neuralgia
     Dosage: UNK, PRN, ONGOING
     Route: 048
     Dates: start: 20201201
  9. MAGNESIUM [Concomitant]
     Active Substance: MAGNESIUM
     Indication: Prophylaxis
     Dosage: UNK, PRN, ONGOING
     Route: 048
     Dates: start: 20201201
  10. OXYCODONE [Concomitant]
     Active Substance: OXYCODONE
     Indication: Pain
     Dosage: UNK, PRN, ONGOING
     Route: 048
     Dates: start: 20211101
  11. POLYETHYLENE GLYCOL 3350 [Concomitant]
     Active Substance: POLYETHYLENE GLYCOL 3350
     Indication: Constipation
     Dosage: UNK, PRN, ONGOING
     Route: 048
     Dates: start: 20201201
  12. BACTRIM [Concomitant]
     Active Substance: SULFAMETHOXAZOLE\TRIMETHOPRIM
     Indication: Prophylaxis
     Dosage: UNK, PRN, ONGOING
     Route: 048
     Dates: start: 20201201
  13. HYDROXYZINE [Concomitant]
     Active Substance: HYDROXYZINE HYDROCHLORIDE
     Indication: Nausea
     Dosage: UNK, ONGOING
     Route: 048
     Dates: start: 20210219
  14. HYDROXYZINE [Concomitant]
     Active Substance: HYDROXYZINE HYDROCHLORIDE
     Indication: Vomiting

REACTIONS (1)
  - Epistaxis [Recovered/Resolved]

NARRATIVE: CASE EVENT DATE: 20211128
